FAERS Safety Report 5264257-X (Version None)
Quarter: 2007Q1

REPORT INFORMATION
  Report Type: 
  Country: None (occurrence: None)
  Receive Date: 20070313
  Receipt Date: 20070305
  Transmission Date: 20070707
  Serious: Yes (Other)
  Sender: FDA-Public Use
  Company Number: IE-ABBOTT-07P-229-0361117-00

PATIENT
  Sex: Female

DRUGS (2)
  1. KLACID LA [Suspect]
     Indication: LOWER RESPIRATORY TRACT INFECTION
     Route: 048
     Dates: start: 20070116, end: 20070122
  2. PSEUDOEPHEDRINE HYDROCHLORIDE [Concomitant]
     Indication: DRUG USE FOR UNKNOWN INDICATION

REACTIONS (2)
  - AGEUSIA [None]
  - PAROSMIA [None]
